FAERS Safety Report 7206290-4 (Version None)
Quarter: 2011Q1

REPORT INFORMATION
  Report Type: 
  Country: None (occurrence: None)
  Receive Date: 20110103
  Receipt Date: 20101222
  Transmission Date: 20110831
  Serious: Yes (Hospitalization)
  Sender: FDA-Public Use
  Company Number: PHHY2010CA81808

PATIENT
  Sex: Female

DRUGS (2)
  1. CIF [Suspect]
  2. ACLASTA [Suspect]
     Indication: OSTEOPOROSIS
     Dosage: 5 MG
     Route: 042
     Dates: start: 20091127

REACTIONS (3)
  - LIMB OPERATION [None]
  - LOCALISED INFECTION [None]
  - TENOSYNOVITIS [None]
